FAERS Safety Report 5116859-9 (Version None)
Quarter: 2006Q3

REPORT INFORMATION
  Report Type: 
  Country: None (occurrence: None)
  Receive Date: 20060925
  Receipt Date: 20060912
  Transmission Date: 20061208
  Serious: Yes (Other)
  Sender: FDA-Public Use
  Company Number: 2006110120

PATIENT
  Age: 69 Year
  Sex: Female
  Weight: 86.1834 kg

DRUGS (2)
  1. CLEOCIN HCL CAPSULE (CLINDAMYCIN HYDROCHLORIDE) [Suspect]
     Indication: POSTOPERATIVE CARE
     Dosage: 1200 MG (300 MG, 4 IN 1 D)
     Dates: start: 20060401, end: 20060101
  2. B COMPLEX (NICOTINAMIDE, PYRIDOXINE HYDROCHLORIDE, RIBOFLAVIN, THIAMIN [Concomitant]

REACTIONS (3)
  - BLOOD CHOLESTEROL INCREASED [None]
  - DYSGEUSIA [None]
  - POLYARTHRITIS [None]
